FAERS Safety Report 8815562 (Version 3)
Quarter: 2013Q1

REPORT INFORMATION
  Report Type: Spontaneous
  Country: US (occurrence: US)
  Receive Date: 20120928
  Receipt Date: 20130218
  Transmission Date: 20140127
  Serious: No
  Sender: FDA-Public Use
  Company Number: US-009507513-1209USA009043

PATIENT
  Age: 13 None
  Sex: Female
  Weight: 66.21 kg

DRUGS (5)
  1. SINGULAIR [Suspect]
     Indication: CHEST DISCOMFORT
     Dosage: 10 MG, UNK
     Route: 048
     Dates: start: 201203
  2. SINGULAIR [Suspect]
     Indication: DYSPNOEA
  3. SINGULAIR [Suspect]
     Indication: BRONCHOSPASM
  4. QVAR [Concomitant]
  5. VENTOLIN (ALBUTEROL SULFATE) [Concomitant]

REACTIONS (4)
  - Menorrhagia [Unknown]
  - Insomnia [Not Recovered/Not Resolved]
  - Overdose [Unknown]
  - Insomnia [Not Recovered/Not Resolved]
